FAERS Safety Report 15691903 (Version 1)
Quarter: 2018Q4

REPORT INFORMATION
  Report Type: Spontaneous
  Country: US (occurrence: US)
  Receive Date: 20181205
  Receipt Date: 20181205
  Transmission Date: 20190205
  Serious: No
  Sender: FDA-Public Use
  Company Number: US-PFIZER INC-2018499746

PATIENT
  Age: 31 Year
  Sex: Male
  Weight: 99.79 kg

DRUGS (1)
  1. ADVIL [Suspect]
     Active Substance: IBUPROFEN
     Indication: HEADACHE
     Dosage: 3 DF, AS NEEDED
     Route: 048

REACTIONS (4)
  - Incorrect dose administered [Unknown]
  - Product use complaint [Unknown]
  - Choking sensation [Unknown]
  - Throat irritation [Unknown]

NARRATIVE: CASE EVENT DATE: 20181129
